FAERS Safety Report 12676082 (Version 1)
Quarter: 2016Q3

REPORT INFORMATION
  Report Type: Spontaneous
  Country: US (occurrence: None)
  Receive Date: 20160822
  Receipt Date: 20160822
  Transmission Date: 20161109
  Serious: Yes (Hospitalization, Disabling)
  Sender: FDA-Public Use
  Company Number: None

PATIENT
  Age: 23 Year
  Sex: Female
  Weight: 58.97 kg

DRUGS (1)
  1. CIPRO [Suspect]
     Active Substance: CIPROFLOXACIN HYDROCHLORIDE
     Indication: URINARY TRACT INFECTION
     Route: 048
     Dates: start: 20160615, end: 20160618

REACTIONS (8)
  - Dizziness [None]
  - Fatigue [None]
  - Neuropathy peripheral [None]
  - Migraine [None]
  - Mitochondrial myopathy [None]
  - Hypoaesthesia [None]
  - Tendonitis [None]
  - Weight decreased [None]

NARRATIVE: CASE EVENT DATE: 20160723
